FAERS Safety Report 6756413-6 (Version None)
Quarter: 2010Q2

REPORT INFORMATION
  Report Type: 
  Country: None (occurrence: None)
  Receive Date: 20100604
  Receipt Date: 20100528
  Transmission Date: 20101027
  Serious: Yes (Hospitalization)
  Sender: FDA-Public Use
  Company Number: A0784692A

PATIENT
  Age: 46 Year
  Sex: Male

DRUGS (6)
  1. AVANDIA [Suspect]
     Dosage: 4MG PER DAY
     Route: 048
     Dates: start: 19990601, end: 20010401
  2. ZIAC [Concomitant]
  3. MONOPRIL [Concomitant]
  4. GLUCOTROL [Concomitant]
  5. REMERON [Concomitant]
  6. LORCET-HD [Concomitant]

REACTIONS (2)
  - CORONARY ARTERY DISEASE [None]
  - MYOCARDIAL INFARCTION [None]
